FAERS Safety Report 18315045 (Version 2)
Quarter: 2020Q4

REPORT INFORMATION
  Report Type: Spontaneous
  Country: US (occurrence: US)
  Receive Date: 20200926
  Receipt Date: 20201007
  Transmission Date: 20210113
  Serious: Yes (Hospitalization, Other)
  Sender: FDA-Public Use
  Company Number: US-UNITED THERAPEUTICS-UNT-2020-012782

PATIENT
  Age: 63 Year
  Sex: Female
  Weight: 54.88 kg

DRUGS (4)
  1. LETAIRIS [Concomitant]
     Active Substance: AMBRISENTAN
     Indication: PRODUCT USED FOR UNKNOWN INDICATION
     Dosage: UNK
     Route: 065
  2. ADEMPAS [Concomitant]
     Active Substance: RIOCIGUAT
     Indication: PRODUCT USED FOR UNKNOWN INDICATION
     Dosage: UNK
     Route: 065
  3. REMODULIN [Suspect]
     Active Substance: TREPROSTINIL
     Indication: PULMONARY ARTERIAL HYPERTENSION
     Dosage: UNK, CONTINUING
     Route: 041
     Dates: start: 20200415
  4. REMODULIN [Suspect]
     Active Substance: TREPROSTINIL
     Dosage: 0.045 ?G/KG, CONTINUING
     Route: 041
     Dates: start: 2020

REACTIONS (7)
  - Catheter site irritation [Not Recovered/Not Resolved]
  - Device dislocation [Unknown]
  - Dermatitis contact [Recovered/Resolved]
  - Catheter site rash [Not Recovered/Not Resolved]
  - Catheter site cellulitis [Recovered/Resolved]
  - Vascular device infection [Recovered/Resolved]
  - Catheter site pruritus [Not Recovered/Not Resolved]

NARRATIVE: CASE EVENT DATE: 2020
